FAERS Safety Report 8477188-9 (Version None)
Quarter: 2012Q2

REPORT INFORMATION
  Report Type: 
  Country: None (occurrence: None)
  Receive Date: 20120625
  Receipt Date: 20120625
  Transmission Date: 20120825
  Serious: Yes (Life-Threatening)
  Sender: FDA-Public Use
  Company Number: None

PATIENT
  Age: 55 Year
  Sex: Female
  Weight: 90.7194 kg

DRUGS (1)
  1. TEFLARO [Suspect]
     Indication: OSTEOMYELITIS
     Dosage: 1 BAG PIC LINE Q 12 HOURS IV DRIP
     Route: 041
     Dates: start: 20120525, end: 20120622

REACTIONS (2)
  - DRUG HYPERSENSITIVITY [None]
  - ANAPHYLACTIC REACTION [None]
